FAERS Safety Report 5466955-1 (Version None)
Quarter: 2007Q3

REPORT INFORMATION
  Report Type: 
  Country: None (occurrence: None)
  Receive Date: 20070920
  Receipt Date: 20070904
  Transmission Date: 20080115
  Serious: Yes (Other)
  Sender: FDA-Public Use
  Company Number: 2007BI019231

PATIENT
  Age: 57 Year
  Sex: Male

DRUGS (29)
  1. ZEVALIN [Suspect]
     Indication: BONE MARROW CONDITIONING REGIMEN
     Dosage: 890 MBQ; 1X; IV
     Route: 042
     Dates: start: 20070208, end: 20070208
  2. TAZOCILLINE [Concomitant]
  3. FORTUM [Concomitant]
  4. RITUXAN [Concomitant]
  5. RITUXAN [Concomitant]
  6. ETOPOSIDE-TEVA [Concomitant]
  7. CYTARABINE [Concomitant]
  8. BICNU [Concomitant]
  9. ALKERAN [Concomitant]
  10. KEPIVANCE 6.25 MG [Concomitant]
  11. KEPIVANCE 6.25 MG [Concomitant]
  12. KEPIVANCE 6.25 MG [Concomitant]
  13. KEPIVANCE 6.25 MG [Concomitant]
  14. KEPIVANCE 6.25 MG [Concomitant]
  15. KEPIVANCE 6.25 MG [Concomitant]
  16. CIFLOX [Concomitant]
  17. FLAGYL [Concomitant]
  18. VANCOMYCIN HCL [Concomitant]
  19. TIENAM [Concomitant]
  20. CASPOFUNGIN [Concomitant]
  21. VORICONAZOLE [Concomitant]
  22. AMBISOME [Concomitant]
  23. ZELITREX [Concomitant]
  24. ZOVIRAX [Concomitant]
  25. BACTRIM [Concomitant]
  26. AMIKLIN [Concomitant]
  27. HEPARIN [Concomitant]
  28. ZOFRAN [Concomitant]
  29. EMEND [Concomitant]

REACTIONS (14)
  - ASPERGILLOSIS [None]
  - BACTERIA STOOL IDENTIFIED [None]
  - CHOLESTASIS [None]
  - CULTURE STOOL POSITIVE [None]
  - ESCHERICHIA INFECTION [None]
  - FEBRILE NEUTROPENIA [None]
  - HAEMOGLOBIN DECREASED [None]
  - HEPATOSPLENOMEGALY [None]
  - LUNG NEOPLASM [None]
  - PLATELET COUNT DECREASED [None]
  - PULMONARY VENO-OCCLUSIVE DISEASE [None]
  - RESPIRATORY SYNCYTIAL VIRUS INFECTION [None]
  - STEM CELL TRANSPLANT [None]
  - WHITE BLOOD CELL COUNT DECREASED [None]
